FAERS Safety Report 21304270 (Version 1)
Quarter: 2022Q3

REPORT INFORMATION
  Report Type: Report from Study
  Country: TW (occurrence: TW)
  Receive Date: 20220907
  Receipt Date: 20220907
  Transmission Date: 20221026
  Serious: Yes (Other)
  Sender: FDA-Public Use
  Company Number: TW-VIIV HEALTHCARE LIMITED-TW2022APC127262

PATIENT

DRUGS (2)
  1. LAMIVUDINE AND ZIDOVUDINE [Suspect]
     Active Substance: LAMIVUDINE\ZIDOVUDINE
     Indication: HIV infection
     Dosage: UNK
  2. VIRAMUNE [Suspect]
     Active Substance: NEVIRAPINE
     Indication: HIV infection
     Dosage: UNK

REACTIONS (11)
  - Bipolar disorder [Unknown]
  - Parosmia [Unknown]
  - Vomiting [Unknown]
  - Pyrexia [Recovered/Resolved]
  - Discomfort [Unknown]
  - Memory impairment [Unknown]
  - Coordination abnormal [Unknown]
  - Body fat disorder [Unknown]
  - Nail discolouration [Unknown]
  - Headache [Unknown]
  - Deformity [Unknown]
